FAERS Safety Report 9371949 (Version 1)
Quarter: 2013Q2

REPORT INFORMATION
  Report Type: Report from Study
  Country: US (occurrence: US)
  Receive Date: 20130627
  Receipt Date: 20130627
  Transmission Date: 20140414
  Serious: Yes (Death)
  Sender: FDA-Public Use
  Company Number: US-MYLANLABS-2012S1010964

PATIENT
  Age: 29 Year
  Sex: Male
  Weight: 58.51 kg

DRUGS (4)
  1. CLOZAPINE TABLETS [Suspect]
     Indication: SCHIZOAFFECTIVE DISORDER
  2. CLOZAPINE TABLETS [Suspect]
  3. RISPERIDONE [Concomitant]
  4. LAMICTAL [Concomitant]

REACTIONS (1)
  - Death [Fatal]
